FAERS Safety Report 7105638-9 (Version None)
Quarter: 2010Q4

REPORT INFORMATION
  Report Type: 
  Country: None (occurrence: None)
  Receive Date: 20101110
  Receipt Date: 20101027
  Transmission Date: 20110411
  Serious: Yes (Death, Life-Threatening, Hospitalization)
  Sender: FDA-Public Use
  Company Number: 140972

PATIENT
  Age: 81 Year
  Sex: Male

DRUGS (19)
  1. CYTARABINE [Suspect]
     Indication: ACUTE MYELOID LEUKAEMIA
     Dosage: 39.6 MG, 1 DAY, SUBCUTANEOUS, 37.8 MG (1 DAY), SUBCUTANEOUS
     Route: 058
     Dates: start: 20081001, end: 20081002
  2. CYTARABINE [Suspect]
     Indication: ACUTE MYELOID LEUKAEMIA
     Dosage: 39.6 MG, 1 DAY, SUBCUTANEOUS, 37.8 MG (1 DAY), SUBCUTANEOUS
     Route: 058
     Dates: start: 20081029, end: 20081107
  3. (HYDROXYCARBAMIDE) [Concomitant]
  4. ZOFRAN [Concomitant]
  5. SODIUM CHLORIDE [Concomitant]
  6. POTASSIUM CHLORIDE [Concomitant]
  7. CAPTOPRIL [Concomitant]
  8. (METOCARD) [Concomitant]
  9. (ENARENAL) [Concomitant]
  10. (TERTENSIF) [Concomitant]
  11. LACTULOSE [Concomitant]
  12. (BIOTUM) [Concomitant]
  13. (FUROSEMID /00032601/) [Concomitant]
  14. (MILURIT) [Concomitant]
  15. (MERONEM /01250501/) [Concomitant]
  16. KETOCONAZOLE [Concomitant]
  17. (EXACYL) [Concomitant]
  18. (PROXACIN /00697201/) [Concomitant]
  19. (MASSE) [Concomitant]

REACTIONS (7)
  - ASTHENIA [None]
  - DYSPNOEA [None]
  - EAR INFECTION [None]
  - GENERAL PHYSICAL CONDITION ABNORMAL [None]
  - HYPERTENSIVE CRISIS [None]
  - PULMONARY OEDEMA [None]
  - PYREXIA [None]
